FAERS Safety Report 7032317-9 (Version None)
Quarter: 2010Q4

REPORT INFORMATION
  Report Type: 
  Country: None (occurrence: None)
  Receive Date: 20101007
  Receipt Date: 20100611
  Transmission Date: 20110411
  Serious: Yes (Life-Threatening, Hospitalization)
  Sender: FDA-Public Use
  Company Number: FR-BRISTOL-MYERS SQUIBB COMPANY-15148067

PATIENT
  Age: 43 Year
  Sex: Female
  Weight: 102 kg

DRUGS (6)
  1. CETUXIMAB [Suspect]
     Indication: COLORECTAL CANCER
     Route: 042
     Dates: start: 20100512
  2. FLUOROURACIL [Suspect]
     Indication: COLORECTAL CANCER
     Dosage: RECENT DOSE:16MAY10
     Route: 042
     Dates: start: 20100513
  3. IRINOTECAN HCL [Suspect]
     Indication: COLORECTAL CANCER
     Route: 042
     Dates: start: 20100513
  4. OXALIPLATIN [Suspect]
     Indication: COLORECTAL CANCER
     Dosage: RECENT DOSE:15MAY10
     Route: 042
     Dates: start: 20100513
  5. PARACETAMOL [Concomitant]
     Route: 048
     Dates: start: 20100316, end: 20100523
  6. PHLOROGLUCINOL [Concomitant]

REACTIONS (2)
  - PULMONARY EMBOLISM [None]
  - VENOUS THROMBOSIS [None]
